FAERS Safety Report 25728012 (Version 1)
Quarter: 2025Q3

REPORT INFORMATION
  Report Type: Spontaneous
  Country: US (occurrence: US)
  Receive Date: 20250826
  Receipt Date: 20250826
  Transmission Date: 20251021
  Serious: Yes (Other)
  Sender: KYOWA
  Company Number: US-KYOWAKIRIN-2025KK016382

PATIENT

DRUGS (2)
  1. POTELIGEO [Suspect]
     Active Substance: MOGAMULIZUMAB-KPKC
     Indication: Cutaneous T-cell lymphoma
     Dosage: UNK, 1X/WEEK
     Route: 065
     Dates: start: 20250812
  2. POTELIGEO [Suspect]
     Active Substance: MOGAMULIZUMAB-KPKC
     Dosage: UNK, 1X/2 WEEKS
     Route: 065

REACTIONS (2)
  - Blood pressure decreased [Recovered/Resolved]
  - Loss of consciousness [Unknown]

NARRATIVE: CASE EVENT DATE: 20250812
